FAERS Safety Report 5579610-4 (Version None)
Quarter: 2008Q1

REPORT INFORMATION
  Report Type: 
  Country: None (occurrence: None)
  Receive Date: 20080102
  Receipt Date: 20071220
  Transmission Date: 20080703
  Serious: Yes (Other)
  Sender: FDA-Public Use
  Company Number: CH-GENENTECH-253156

PATIENT
  Sex: Female

DRUGS (3)
  1. LUCENTIS [Suspect]
     Indication: MACULAR DEGENERATION
     Route: 031
     Dates: start: 20071002
  2. LUCENTIS [Suspect]
     Route: 031
     Dates: start: 20071031
  3. SINTROM [Suspect]
     Indication: THROMBOSIS PROPHYLAXIS
     Dosage: UNK, UNKNOWN
     Route: 065

REACTIONS (3)
  - HAEMATOMA [None]
  - ORAL CANDIDIASIS [None]
  - PROTHROMBIN TIME PROLONGED [None]
